FAERS Safety Report 19509363 (Version 1)
Quarter: 2021Q3

REPORT INFORMATION
  Report Type: Spontaneous
  Country: US (occurrence: US)
  Receive Date: 20210709
  Receipt Date: 20210709
  Transmission Date: 20211014
  Serious: No
  Sender: FDA-Public Use
  Company Number: US-PRINSTON PHARMACEUTICAL INC.-2020PRN00273

PATIENT
  Sex: Female

DRUGS (6)
  1. LISINOPRIL. [Suspect]
     Active Substance: LISINOPRIL
     Dosage: 20 MG, 2X/DAY (AT 8AM AND AT 8PM)
     Dates: start: 20200731, end: 2020
  2. LISINOPRIL. [Suspect]
     Active Substance: LISINOPRIL
     Dosage: 40 MG, 1X/DAY
     Dates: start: 2014, end: 20200730
  3. ELIQUIS [Suspect]
     Active Substance: APIXABAN
     Dosage: UNK
     Dates: end: 2020
  4. LISINOPRIL. [Suspect]
     Active Substance: LISINOPRIL
     Dosage: 40 MG, 1X/DAY
     Dates: start: 2004, end: 2014
  5. EZETIMIBE. [Suspect]
     Active Substance: EZETIMIBE
     Dosage: UNK
     Dates: end: 2020
  6. LISINOPRIL. [Suspect]
     Active Substance: LISINOPRIL
     Dosage: 20 MG, 2X/DAY
     Dates: start: 2014, end: 2014

REACTIONS (8)
  - Blister [Not Recovered/Not Resolved]
  - Palpitations [Not Recovered/Not Resolved]
  - Rash pruritic [Not Recovered/Not Resolved]
  - Urticaria [Not Recovered/Not Resolved]
  - Hypertension [Not Recovered/Not Resolved]
  - Hypotension [Recovered/Resolved]
  - Drug ineffective [Not Recovered/Not Resolved]
  - Therapeutic response shortened [Recovered/Resolved]

NARRATIVE: CASE EVENT DATE: 2014
